FAERS Safety Report 5846673-8 (Version None)
Quarter: 2008Q3

REPORT INFORMATION
  Report Type: 
  Country: None (occurrence: None)
  Receive Date: 20080815
  Receipt Date: 20080806
  Transmission Date: 20090109
  Serious: Yes (Other)
  Sender: FDA-Public Use
  Company Number: B0532708A

PATIENT
  Age: 70 Year
  Sex: Male

DRUGS (7)
  1. AUGMENTIN '125' [Suspect]
     Route: 065
  2. AUGMENTIN '125' [Suspect]
     Route: 065
  3. ZYLOPRIM [Concomitant]
  4. ATENOLOL [Concomitant]
  5. MOBIC [Concomitant]
  6. PARIET [Concomitant]
  7. LOPID [Concomitant]

REACTIONS (7)
  - ABDOMINAL PAIN UPPER [None]
  - DIARRHOEA [None]
  - DYSPEPSIA [None]
  - DYSPNOEA [None]
  - ERUCTATION [None]
  - PSORIASIS [None]
  - RASH [None]
